FAERS Safety Report 15588024 (Version 11)
Quarter: 2019Q2

REPORT INFORMATION
  Report Type: Report from Study
  Country: US (occurrence: US)
  Receive Date: 20181105
  Receipt Date: 20190404
  Transmission Date: 20190711
  Serious: Yes (Hospitalization)
  Sender: FDA-Public Use
  Company Number: US-ACTELION-A-NJ2018-181258

PATIENT
  Age: 80 Year
  Sex: Female
  Weight: 55.78 kg

DRUGS (4)
  1. UPTRAVI [Suspect]
     Active Substance: SELEXIPAG
     Indication: PULMONARY ARTERIAL HYPERTENSION
     Dosage: 200 MCG, BID
     Route: 048
     Dates: start: 20181216, end: 201812
  2. VELETRI [Suspect]
     Active Substance: EPOPROSTENOL
     Indication: PULMONARY ARTERIAL HYPERTENSION
     Dosage: 12 NG/KG, PER MIN
     Route: 042
  3. VELETRI [Suspect]
     Active Substance: EPOPROSTENOL
     Dosage: 18 NG/KG, PER MIN
     Route: 042
     Dates: end: 20181216
  4. AMLODIPINE [Concomitant]
     Active Substance: AMLODIPINE BESYLATE

REACTIONS (20)
  - Malaise [Unknown]
  - Fluid overload [Unknown]
  - Blood urea increased [Unknown]
  - Cardiac disorder [Unknown]
  - Pain in jaw [Unknown]
  - Sleep disorder [Unknown]
  - Asthenia [Unknown]
  - Gastrointestinal disorder [Unknown]
  - Hypotension [Unknown]
  - Headache [Unknown]
  - Oxygen therapy [Unknown]
  - Rales [Unknown]
  - Ocular hyperaemia [Unknown]
  - Atrial fibrillation [Recovering/Resolving]
  - Epistaxis [Unknown]
  - Abdominal distension [Unknown]
  - Oedema [Unknown]
  - Oedema peripheral [Unknown]
  - Heart rate increased [Unknown]
  - Therapy change [Unknown]

NARRATIVE: CASE EVENT DATE: 20181117
